FAERS Safety Report 5426061-9 (Version None)
Quarter: 2007Q3

REPORT INFORMATION
  Report Type: 
  Country: None (occurrence: None)
  Receive Date: 20070824
  Receipt Date: 20070824
  Transmission Date: 20080115
  Serious: Yes (Hospitalization)
  Sender: FDA-Public Use
  Company Number: None

PATIENT
  Sex: Female
  Weight: 50 kg

DRUGS (1)
  1. TEMOZOLOMIDE [Suspect]
     Dosage: 2200 MG

REACTIONS (11)
  - ABNORMAL BEHAVIOUR [None]
  - ANXIETY [None]
  - ASTHENIA [None]
  - BLOOD BILIRUBIN INCREASED [None]
  - DEHYDRATION [None]
  - FLUID INTAKE REDUCED [None]
  - HYPERGLYCAEMIA [None]
  - HYPONATRAEMIA [None]
  - NAUSEA [None]
  - TRANSAMINASES INCREASED [None]
  - VOMITING [None]
